FAERS Safety Report 13568552 (Version 3)
Quarter: 2017Q3

REPORT INFORMATION
  Report Type: Report from Study
  Country: US (occurrence: US)
  Receive Date: 20170522
  Receipt Date: 20170717
  Transmission Date: 20171127
  Serious: Yes (Other)
  Sender: FDA-Public Use
  Company Number: US-JNJFOC-20170324928

PATIENT
  Age: 54 Year
  Sex: Male

DRUGS (22)
  1. DOXAZOSIN MESYLATE. [Concomitant]
     Active Substance: DOXAZOSIN MESYLATE
  2. RIFAMPIN. [Concomitant]
     Active Substance: RIFAMPIN
  3. CLARITIN [Concomitant]
     Active Substance: LORATADINE
  4. IMBRUVICA [Suspect]
     Active Substance: IBRUTINIB
     Indication: CHRONIC LYMPHOCYTIC LEUKAEMIA
     Route: 048
     Dates: start: 20170119
  5. ZITHROMAX [Concomitant]
     Active Substance: AZITHROMYCIN DIHYDRATE
  6. SILDENAFIL. [Concomitant]
     Active Substance: SILDENAFIL
  7. MUPIROCIN. [Concomitant]
     Active Substance: MUPIROCIN
  8. DETROL [Concomitant]
     Active Substance: TOLTERODINE TARTRATE
  9. CLOBETASOL [Concomitant]
     Active Substance: CLOBETASOL
  10. FLONASE [Concomitant]
     Active Substance: FLUTICASONE PROPIONATE
  11. IBUPROFEN. [Concomitant]
     Active Substance: IBUPROFEN
  12. PROAIR HFA [Concomitant]
     Active Substance: ALBUTEROL SULFATE
  13. CEPHALEXINE [Concomitant]
     Active Substance: CEPHALEXIN
  14. TYLENOL [Concomitant]
     Active Substance: ACETAMINOPHEN
  15. IMBRUVICA [Suspect]
     Active Substance: IBRUTINIB
     Indication: CHRONIC LYMPHOCYTIC LEUKAEMIA
     Route: 048
     Dates: start: 20170109
  16. TOPROL XL [Concomitant]
     Active Substance: METOPROLOL SUCCINATE
  17. VALTREX [Concomitant]
     Active Substance: VALACYCLOVIR HYDROCHLORIDE
  18. LEVAQUIN [Concomitant]
     Active Substance: LEVOFLOXACIN
  19. MUCINEX [Concomitant]
     Active Substance: GUAIFENESIN
  20. CORMAX [Concomitant]
     Active Substance: CLOBETASOL PROPIONATE
  21. TRIMETHOPRIM SULFAMETHOXAZOLE [Concomitant]
     Active Substance: SULFAMETHOXAZOLE\TRIMETHOPRIM
  22. OXYBUTYNIN CHLORIDE. [Concomitant]
     Active Substance: OXYBUTYNIN CHLORIDE

REACTIONS (8)
  - Skin fissures [Not Recovered/Not Resolved]
  - Skin ulcer [Not Recovered/Not Resolved]
  - Pain [Not Recovered/Not Resolved]
  - Staphylococcal infection [Recovered/Resolved]
  - Rash [Not Recovered/Not Resolved]
  - Palpitations [Not Recovered/Not Resolved]
  - Swelling [Not Recovered/Not Resolved]
  - Erythema [Not Recovered/Not Resolved]

NARRATIVE: CASE EVENT DATE: 201703
